FAERS Safety Report 9653633 (Version 4)
Quarter: 2014Q1

REPORT INFORMATION
  Report Type: Spontaneous
  Country: US (occurrence: None)
  Receive Date: 20131028
  Receipt Date: 20140310
  Transmission Date: 20141002
  Serious: Yes (Hospitalization, Other)
  Sender: FDA-Public Use
  Company Number: VAL_02781_2013

PATIENT
  Sex: Female

DRUGS (3)
  1. METOPROLOL TARTRATE [Suspect]
     Indication: PRODUCT USED FOR UNKNOWN INDICATION
     Dosage: DF
  2. ALBUTEROL SULPHATE [Suspect]
     Indication: CHRONIC OBSTRUCTIVE PULMONARY DISEASE
     Dosage: DF
  3. SIMVASTATIN [Suspect]
     Indication: PRODUCT USED FOR UNKNOWN INDICATION
     Dosage: (DF)

REACTIONS (23)
  - Tremor [None]
  - Neuropathy peripheral [None]
  - Pain in extremity [None]
  - Pulmonary mass [None]
  - Rosacea [None]
  - Eczema [None]
  - Dry skin [None]
  - Pruritus [None]
  - Blood pressure decreased [None]
  - Pneumothorax [None]
  - Insomnia [None]
  - Cough [None]
  - Skin fissures [None]
  - Skin haemorrhage [None]
  - Neoplasm malignant [None]
  - Restless legs syndrome [None]
  - Bunion [None]
  - Dyskinesia [None]
  - Lung neoplasm malignant [None]
  - Rash [None]
  - Muscle spasms [None]
  - Myalgia [None]
  - Drug administration error [None]
